FAERS Safety Report 8555471-6 (Version None)
Quarter: 2012Q3

REPORT INFORMATION
  Report Type: 
  Country: None (occurrence: None)
  Receive Date: 20120731
  Receipt Date: 20120316
  Transmission Date: 20120928
  Serious: No
  Sender: FDA-Public Use
  Company Number: US-ASTRAZENECA-2011SE08940

PATIENT
  Age: 51 Year
  Sex: Male

DRUGS (5)
  1. PREDNISONE [Concomitant]
  2. SEROQUEL XR [Suspect]
     Indication: BIPOLAR DISORDER
     Route: 048
  3. SEROQUEL XR [Suspect]
     Dosage: 300 MG TWICE DAILY EVERY OTHER DAY AND ONCE DAILY EVERY OTHER DAY
     Route: 048
  4. DEPAKOTE [Concomitant]
  5. KLONOPIN [Concomitant]

REACTIONS (4)
  - MALAISE [None]
  - DRUG DOSE OMISSION [None]
  - SINUSITIS [None]
  - BACK PAIN [None]
